FAERS Safety Report 19356735 (Version 1)
Quarter: 2021Q2

REPORT INFORMATION
  Report Type: Other
  Country: US (occurrence: US)
  Receive Date: 20210602
  Receipt Date: 20210602
  Transmission Date: 20210717
  Serious: Yes (Other)
  Sender: FDA-Public Use
  Company Number: US-INTERCEPT-PM2021001442

PATIENT
  Sex: Female

DRUGS (2)
  1. URSO [Concomitant]
     Active Substance: URSODIOL
     Indication: PRIMARY BILIARY CHOLANGITIS
     Dosage: 2 DOSAGE FORM OF 500 MG, BID
     Dates: start: 20180301
  2. OCALIVA [Suspect]
     Active Substance: OBETICHOLIC ACID
     Indication: PRIMARY BILIARY CHOLANGITIS
     Dosage: 5 MILLIGRAM, QW
     Route: 048
     Dates: start: 20210111, end: 20210415

REACTIONS (6)
  - Pulmonary oedema [Unknown]
  - Drug ineffective [Unknown]
  - Blood alkaline phosphatase abnormal [Unknown]
  - Transplant evaluation [Unknown]
  - Unevaluable event [Unknown]
  - Oedema peripheral [Unknown]
